FAERS Safety Report 18702422 (Version 2)
Quarter: 2021Q1

REPORT INFORMATION
  Report Type: Spontaneous
  Country: US (occurrence: US)
  Receive Date: 20210105
  Receipt Date: 20210107
  Transmission Date: 20210419
  Serious: Yes (Life-Threatening, Hospitalization, Other)
  Sender: FDA-Public Use
  Company Number: US-009507513-2011USA005555

PATIENT

DRUGS (4)
  1. INLYTA [Suspect]
     Active Substance: AXITINIB
     Indication: HODGKIN^S DISEASE
  2. KEYTRUDA [Suspect]
     Active Substance: PEMBROLIZUMAB
     Indication: RENAL CELL CARCINOMA
     Dosage: 200 MILLIGRAM, Q21DAYS
     Route: 042
     Dates: start: 20200702, end: 20200723
  3. KEYTRUDA [Suspect]
     Active Substance: PEMBROLIZUMAB
     Indication: HODGKIN^S DISEASE
  4. INLYTA [Suspect]
     Active Substance: AXITINIB
     Indication: RENAL CELL CARCINOMA
     Dosage: 5 MILLIGRAM, BID
     Route: 048
     Dates: end: 20201023

REACTIONS (3)
  - Hepatotoxicity [Unknown]
  - Hypoglycaemia [Unknown]
  - Diabetes mellitus [Recovered/Resolved]

NARRATIVE: CASE EVENT DATE: 2020
